FAERS Safety Report 5180925-2 (Version None)
Quarter: 2006Q4

REPORT INFORMATION
  Report Type: 
  Country: None (occurrence: None)
  Receive Date: 20061218
  Receipt Date: 20061218
  Transmission Date: 20070319
  Serious: Yes (Life-Threatening, Hospitalization)
  Sender: FDA-Public Use
  Company Number: None

PATIENT
  Age: 65 Year
  Sex: Female

DRUGS (5)
  1. LOTREL [Suspect]
     Indication: HYPERTENSION
     Dosage: 20MG  DAILY  PO
     Route: 048
  2. AGGRENOX [Concomitant]
  3. SIMVASTATIN [Concomitant]
  4. NAPROXEN [Concomitant]
  5. ASPIRIN [Concomitant]

REACTIONS (1)
  - LIP SWELLING [None]
